FAERS Safety Report 25642250 (Version 1)
Quarter: 2025Q3

REPORT INFORMATION
  Report Type: Spontaneous
  Country: US (occurrence: US)
  Receive Date: 20250805
  Receipt Date: 20250805
  Transmission Date: 20251021
  Serious: Yes (Other)
  Sender: BRISTOL-MYERS SQUIBB COMPANY
  Company Number: US-BRISTOL-MYERS SQUIBB COMPANY-2025-107566

PATIENT
  Age: 53 Year
  Sex: Male

DRUGS (1)
  1. REVLIMID [Suspect]
     Active Substance: LENALIDOMIDE
     Indication: Product used for unknown indication
     Dosage: 21 DAY ON 7 DAYS OFF
     Route: 048

REACTIONS (5)
  - Rib fracture [Unknown]
  - Rash [Recovering/Resolving]
  - Throat irritation [Unknown]
  - Migraine [Unknown]
  - Auricular swelling [Unknown]
